FAERS Safety Report 6194663-0 (Version None)
Quarter: 2009Q2

REPORT INFORMATION
  Report Type: 
  Country: None (occurrence: None)
  Receive Date: 20090515
  Receipt Date: 20090515
  Transmission Date: 20091009
  Serious: Yes (Hospitalization)
  Sender: FDA-Public Use
  Company Number: None

PATIENT
  Age: 84 Year
  Sex: Male
  Weight: 83.9 kg

DRUGS (1)
  1. AMANTADINE HCL [Suspect]
     Indication: PARKINSONISM
     Dosage: 100 MG BID PO
     Route: 048
     Dates: start: 20090212, end: 20090319

REACTIONS (6)
  - FALL [None]
  - HALLUCINATION [None]
  - HALLUCINATION, TACTILE [None]
  - INSOMNIA [None]
  - MANIA [None]
  - RESTLESSNESS [None]
